FAERS Safety Report 20194013 (Version 1)
Quarter: 2021Q4

REPORT INFORMATION
  Report Type: Spontaneous
  Country: US (occurrence: None)
  Receive Date: 20211215
  Receipt Date: 20211215
  Transmission Date: 20220303
  Serious: Yes (Life-Threatening, Disabling, Congenital Anomaly, Other)
  Sender: FDA-Public Use
  Company Number: None

PATIENT
  Age: 21 Month
  Sex: Female
  Weight: 11.25 kg

DRUGS (2)
  1. LOVENOX [Suspect]
     Active Substance: ENOXAPARIN SODIUM
     Indication: Pulmonary embolism
     Dosage: OTHER QUANTITY : 1 INJECTION(S);?FREQUENCY : TWICE A DAY;?OTHER ROUTE : INJECTED INTO STOMACH OR THI
     Route: 050
     Dates: start: 20180705, end: 20190402
  2. ALL MEDICATIONS FOR CANCER TREATMENT [Concomitant]

REACTIONS (3)
  - Neuroblastoma [None]
  - Maternal exposure timing unspecified [None]
  - Maternal drugs affecting foetus [None]

NARRATIVE: CASE EVENT DATE: 20201229
